FAERS Safety Report 21249952 (Version 4)
Quarter: 2022Q4

REPORT INFORMATION
  Report Type: Spontaneous
  Country: JP (occurrence: JP)
  Receive Date: 20220824
  Receipt Date: 20221220
  Transmission Date: 20230112
  Serious: Yes (Hospitalization, Other)
  Sender: FDA-Public Use
  Company Number: JP-ONO-BJ201618314

PATIENT
  Age: 64 Year
  Sex: Male

DRUGS (3)
  1. OPDIVO [Suspect]
     Active Substance: NIVOLUMAB
     Indication: Non-small cell lung cancer recurrent
     Dosage: ?2016/7/5,2016,8/9?
     Route: 041
     Dates: start: 20160705, end: 20160809
  2. OPDIVO [Suspect]
     Active Substance: NIVOLUMAB
     Route: 041
  3. OPDIVO [Suspect]
     Active Substance: NIVOLUMAB
     Dosage: DOSE UNKNOWN
     Route: 041
     Dates: end: 20180402

REACTIONS (9)
  - Type 2 diabetes mellitus [Unknown]
  - Myasthenia gravis [Recovering/Resolving]
  - Myositis [Recovering/Resolving]
  - Pulmonary toxicity [Recovered/Resolved]
  - Gynaecomastia [Unknown]
  - Blood prolactin increased [Unknown]
  - Blood creatine phosphokinase increased [Recovered/Resolved]
  - Rash [Unknown]
  - Diarrhoea [Recovered/Resolved]

NARRATIVE: CASE EVENT DATE: 20160801
